FAERS Safety Report 6602044 (Version 2)
Quarter: 2015Q4

REPORT INFORMATION
  Report Type: Spontaneous
  Country: GB (occurrence: GB)
  Receive Date: 20080331
  Receipt Date: 20151230
  Transmission Date: 20160305
  Serious: Yes (Death, Other)
  Sender: FDA-Public Use
  Company Number: GB-ROCHE-940400336001

PATIENT
  Age: 27 Year
  Sex: Male
  Weight: 71 kg

DRUGS (3)
  1. VALPROATE [Interacting]
     Active Substance: VALPROATE SODIUM
     Indication: EPILEPSY
     Route: 048
  2. CARBAMAZEPINE. [Concomitant]
     Active Substance: CARBAMAZEPINE
     Indication: EPILEPSY
     Route: 048
  3. LARIAM [Suspect]
     Active Substance: MEFLOQUINE HYDROCHLORIDE
     Indication: MALARIA PROPHYLAXIS
     Route: 048

REACTIONS (6)
  - Drug interaction [Not Recovered/Not Resolved]
  - Psychotic disorder [Unknown]
  - Epilepsy [Not Recovered/Not Resolved]
  - Drowning [Fatal]
  - Depression [Unknown]
  - Foot fracture [Unknown]

NARRATIVE: CASE EVENT DATE: 19940624
